FAERS Safety Report 9166019 (Version 2)
Quarter: 2013Q2

REPORT INFORMATION
  Report Type: Report from Study
  Country: MX (occurrence: MX)
  Receive Date: 20130315
  Receipt Date: 20130506
  Transmission Date: 20140414
  Serious: Yes (Other)
  Sender: FDA-Public Use
  Company Number: MX-GLAXOSMITHKLINE-B0873378A

PATIENT
  Age: 32 Year
  Sex: Female
  Weight: 54.5 kg

DRUGS (2)
  1. RETIGABINE [Suspect]
     Indication: PARTIAL SEIZURES
     Dosage: 1000MG PER DAY
     Route: 048
     Dates: start: 20091103
  2. CARBAMAZEPINE [Concomitant]
     Indication: CONVULSION
     Dosage: 600MG PER DAY

REACTIONS (3)
  - Pigmentation lip [Unknown]
  - Retinal pigmentation [Not Recovered/Not Resolved]
  - Scleral pigmentation [Not Recovered/Not Resolved]
